FAERS Safety Report 7364473-7 (Version None)
Quarter: 2011Q1

REPORT INFORMATION
  Report Type: 
  Country: None (occurrence: None)
  Receive Date: 20110321
  Receipt Date: 20110310
  Transmission Date: 20110831
  Serious: Yes (Other)
  Sender: FDA-Public Use
  Company Number: BR-JNJFOC-20110306023

PATIENT
  Age: 34 Year
  Sex: Male

DRUGS (4)
  1. TOPIRAMATE [Suspect]
     Indication: PARTIAL SEIZURES
     Route: 065
  2. TOPIRAMATE [Suspect]
     Route: 065
  3. OXCARBAZEPINE [Suspect]
     Route: 065
  4. OXCARBAZEPINE [Suspect]
     Indication: PARTIAL SEIZURES
     Route: 065

REACTIONS (4)
  - PARANOIA [None]
  - HALLUCINATION [None]
  - AGGRESSION [None]
  - PSYCHOMOTOR HYPERACTIVITY [None]
